FAERS Safety Report 4316577-0 (Version None)
Quarter: 2004Q1

REPORT INFORMATION
  Report Type: 
  Country: None (occurrence: None)
  Receive Date: 20040312
  Receipt Date: 20040312
  Transmission Date: 20041129
  Serious: Yes (Other)
  Sender: FDA-Public Use
  Company Number: None

PATIENT
  Age: 45 Year
  Sex: Female

DRUGS (1)
  1. POVIDONE IODINE [Suspect]

REACTIONS (3)
  - APPLICATION SITE BURNING [None]
  - BURNS FIRST DEGREE [None]
  - ERYTHEMA [None]
